FAERS Safety Report 17988402 (Version 1)
Quarter: 2020Q3

REPORT INFORMATION
  Report Type: Spontaneous
  Country: US (occurrence: US)
  Receive Date: 20200706
  Receipt Date: 20200706
  Transmission Date: 20201103
  Serious: Yes (Death)
  Sender: FDA-Public Use
  Company Number: None

PATIENT
  Age: 58 Year
  Sex: Male

DRUGS (3)
  1. MEKINIST [Suspect]
     Active Substance: TRAMETINIB DIMETHYL SULFOXIDE
     Indication: THYROID CANCER
     Route: 048
     Dates: start: 20200403, end: 20200629
  2. N/A [Concomitant]
     Active Substance: UNSPECIFIED INGREDIENT
  3. TAFINLAR [Suspect]
     Active Substance: DABRAFENIB MESYLATE
     Indication: THYROID CANCER
     Route: 048
     Dates: start: 20200403, end: 20200629

REACTIONS (1)
  - Death [None]

NARRATIVE: CASE EVENT DATE: 20200629
